FAERS Safety Report 5249611-4 (Version None)
Quarter: 2007Q1

REPORT INFORMATION
  Report Type: 
  Country: None (occurrence: None)
  Receive Date: 20070228
  Receipt Date: 20060427
  Transmission Date: 20070707
  Serious: No
  Sender: FDA-Public Use
  Company Number: US-GLAXOSMITHKLINE-A0603543A

PATIENT
  Sex: Male

DRUGS (5)
  1. IMITREX [Suspect]
     Indication: MIGRAINE
     Dosage: 6MG AS REQUIRED
     Route: 058
     Dates: start: 20040101
  2. IMITREX [Suspect]
     Dosage: 4MG AS REQUIRED
     Route: 058
     Dates: start: 20060427
  3. VERAPAMIL [Concomitant]
  4. NORCO [Concomitant]
  5. AMBIEN [Concomitant]

REACTIONS (4)
  - CHEST PAIN [None]
  - INJECTION SITE PAIN [None]
  - INJECTION SITE RASH [None]
  - INJECTION SITE URTICARIA [None]
